FAERS Safety Report 6844449-6 (Version None)
Quarter: 2010Q3

REPORT INFORMATION
  Report Type: 
  Country: None (occurrence: None)
  Receive Date: 20100713
  Receipt Date: 20100706
  Transmission Date: 20110219
  Serious: Yes (Hospitalization)
  Sender: FDA-Public Use
  Company Number: 1000014910

PATIENT
  Age: 51 Year
  Sex: Female

DRUGS (11)
  1. SAVELLA [Suspect]
     Indication: FIBROMYALGIA
     Dosage: 12.5 MG (12.5 MG, 1 IN 1 D), 50 MG (25 MG, 2 IN 1 D),  100 MG (50 MG 2 IN 1 D), ORAL
     Route: 048
     Dates: start: 20100601, end: 20100602
  2. SAVELLA [Suspect]
     Indication: FIBROMYALGIA
     Dosage: 12.5 MG (12.5 MG, 1 IN 1 D), 50 MG (25 MG, 2 IN 1 D),  100 MG (50 MG 2 IN 1 D), ORAL
     Route: 048
     Dates: start: 20100603, end: 20100606
  3. SAVELLA [Suspect]
     Indication: FIBROMYALGIA
     Dosage: 12.5 MG (12.5 MG, 1 IN 1 D), 50 MG (25 MG, 2 IN 1 D),  100 MG (50 MG 2 IN 1 D), ORAL
     Route: 048
     Dates: start: 20100607, end: 20100614
  4. SAVELLA [Suspect]
     Indication: FIBROMYALGIA
     Dosage: 12.5 MG (12.5 MG, 1 IN 1 D), 50 MG (25 MG, 2 IN 1 D),  100 MG (50 MG 2 IN 1 D), ORAL
     Route: 048
     Dates: start: 20100618
  5. HUMIRA [Concomitant]
  6. PROTONIX [Concomitant]
  7. PREDNISONE [Concomitant]
  8. REQUIP [Concomitant]
  9. MOBIC [Concomitant]
  10. TALWIN [Concomitant]
  11. LOVASTATIN [Concomitant]

REACTIONS (2)
  - HEPATIC STEATOSIS [None]
  - PANCREATITIS ACUTE [None]
